FAERS Safety Report 17836695 (Version 1)
Quarter: 2020Q2

REPORT INFORMATION
  Report Type: Report from Study
  Country: US (occurrence: US)
  Receive Date: 20200529
  Receipt Date: 20200529
  Transmission Date: 20200714
  Serious: Yes (Disabling)
  Sender: FDA-Public Use
  Company Number: US-ROCHE-2593076

PATIENT
  Age: 33 Year
  Sex: Female
  Weight: 55.3 kg

DRUGS (2)
  1. COBIMETINIB. [Suspect]
     Active Substance: COBIMETINIB
     Indication: CRANIOPHARYNGIOMA
     Route: 065
     Dates: start: 20200331, end: 20200410
  2. VEMURAFENIB. [Suspect]
     Active Substance: VEMURAFENIB
     Indication: CRANIOPHARYNGIOMA
     Route: 065
     Dates: start: 20200331, end: 20200410

REACTIONS (2)
  - Dermatitis acneiform [Recovering/Resolving]
  - Rash maculo-papular [Recovering/Resolving]

NARRATIVE: CASE EVENT DATE: 20200411
